FAERS Safety Report 5068336-1 (Version None)
Quarter: 2006Q3

REPORT INFORMATION
  Report Type: 
  Country: None (occurrence: None)
  Receive Date: 20060802
  Receipt Date: 20050808
  Transmission Date: 20061208
  Serious: Yes (Hospitalization)
  Sender: FDA-Public Use
  Company Number: US-BRISTOL-MYERS SQUIBB COMPANY-13066626

PATIENT
  Sex: Female
  Weight: 57 kg

DRUGS (4)
  1. COUMADIN [Suspect]
     Indication: THROMBOSIS
     Dosage: INITIATED AT 4 MG DAILY, REDUCED TO 3 MG DAILY, RESUMED AT 4 MG DAILY
     Dates: start: 20040101
  2. XANAX [Concomitant]
  3. AMBIEN [Concomitant]
  4. THYROID PREPARATION [Concomitant]

REACTIONS (2)
  - INTERNATIONAL NORMALISED RATIO INCREASED [None]
  - THROMBOSIS [None]
